FAERS Safety Report 17353551 (Version 2)
Quarter: 2020Q1

REPORT INFORMATION
  Report Type: Spontaneous
  Country: US (occurrence: US)
  Receive Date: 20200131
  Receipt Date: 20200219
  Transmission Date: 20200409
  Serious: Yes (Death, Other)
  Sender: FDA-Public Use
  Company Number: US-HIKMA PHARMACEUTICALS USA INC.-US-H14001-20-00259

PATIENT

DRUGS (1)
  1. PHENOBARBIAL SODIUM [Suspect]
     Active Substance: PHENOBARBITAL SODIUM
     Indication: PRODUCT USED FOR UNKNOWN INDICATION
     Route: 058

REACTIONS (5)
  - Product contamination [Unknown]
  - Off label use [Unknown]
  - Suspected transmission of an infectious agent via product [Unknown]
  - Injection site reaction [Unknown]
  - Death [Fatal]
